FAERS Safety Report 5243129-0 (Version None)
Quarter: 2007Q1

REPORT INFORMATION
  Report Type: 
  Country: None (occurrence: None)
  Receive Date: 20070221
  Receipt Date: 20070209
  Transmission Date: 20070707
  Serious: Yes (Hospitalization)
  Sender: FDA-Public Use
  Company Number: AU-PFIZER INC-2006142111

PATIENT
  Sex: Male
  Weight: 78 kg

DRUGS (5)
  1. SULFASALAZINE [Suspect]
     Indication: COLITIS ULCERATIVE
     Route: 048
     Dates: start: 20061030, end: 20061107
  2. LIPITOR [Concomitant]
     Route: 048
  3. CARTIA XT [Concomitant]
     Route: 048
     Dates: start: 19970101
  4. PREDNISONE 50MG TAB [Concomitant]
     Dates: start: 20061030, end: 20061107
  5. COLOFOAM [Concomitant]
     Route: 054
     Dates: start: 20061030, end: 20061103

REACTIONS (9)
  - COLD SWEAT [None]
  - CONFUSIONAL STATE [None]
  - FALL [None]
  - HEADACHE [None]
  - HEPATITIS [None]
  - HOT FLUSH [None]
  - NAUSEA [None]
  - RASH [None]
  - SLEEP DISORDER [None]
